FAERS Safety Report 6676417-1 (Version None)
Quarter: 2010Q2

REPORT INFORMATION
  Report Type: 
  Country: None (occurrence: None)
  Receive Date: 20100412
  Receipt Date: 20100331
  Transmission Date: 20101027
  Serious: Yes (Other)
  Sender: FDA-Public Use
  Company Number: PHHY2010JP08874

PATIENT
  Age: 50 Year
  Sex: Male
  Weight: 80 kg

DRUGS (6)
  1. NEORAL [Suspect]
     Indication: MYASTHENIA GRAVIS
     Dosage: 250 MG DAILY
     Route: 048
     Dates: start: 20100129, end: 20100301
  2. MESTINON [Concomitant]
     Dosage: 180 MG
     Route: 048
     Dates: start: 20090801
  3. PREDONINE [Concomitant]
     Dosage: 100 MG
     Route: 048
  4. UBRETID [Concomitant]
     Dosage: 15 MG
  5. TAKEPRON [Concomitant]
     Dosage: 15 MG
  6. ALENDRONATE SODIUM [Concomitant]
     Dosage: 35 MG

REACTIONS (5)
  - DEAFNESS TRAUMATIC [None]
  - ENDOTRACHEAL INTUBATION [None]
  - HYPOACUSIS [None]
  - SURGERY [None]
  - TINNITUS [None]
